FAERS Safety Report 25412944 (Version 1)
Quarter: 2025Q2

REPORT INFORMATION
  Report Type: Spontaneous
  Country: US (occurrence: None)
  Receive Date: 20250606
  Receipt Date: 20250606
  Transmission Date: 20250717
  Serious: Yes (Other)
  Sender: FDA-CTU
  Company Number: None

PATIENT
  Age: 22 Year
  Sex: Female
  Weight: 65.7 kg

DRUGS (4)
  1. PANZYGA [Suspect]
     Active Substance: HUMAN IMMUNOGLOBULIN G
     Indication: Hypogammaglobulinaemia
     Route: 042
     Dates: start: 20250603, end: 20250603
  2. SODIUM CHLORIDE [Concomitant]
     Active Substance: SODIUM CHLORIDE
     Dates: start: 20250603, end: 20250603
  3. Acetaminophen 650mg [Concomitant]
     Dates: start: 20250603, end: 20250603
  4. DIPHENHYDRAMINE [Concomitant]
     Active Substance: DIPHENHYDRAMINE
     Dates: start: 20250603, end: 20250603

REACTIONS (9)
  - Infusion related reaction [None]
  - Nausea [None]
  - Rash [None]
  - Urticaria [None]
  - Swelling face [None]
  - Lip swelling [None]
  - Peripheral swelling [None]
  - Chest pain [None]
  - Swollen tongue [None]

NARRATIVE: CASE EVENT DATE: 20250603
